FAERS Safety Report 8489601-1 (Version None)
Quarter: 2012Q3

REPORT INFORMATION
  Report Type: 
  Country: None (occurrence: None)
  Receive Date: 20120705
  Receipt Date: 20120629
  Transmission Date: 20120928
  Serious: Yes (Hospitalization, Other)
  Sender: FDA-Public Use
  Company Number: US-PFIZER INC-2012074779

PATIENT
  Sex: Female

DRUGS (8)
  1. ELAVIL [Concomitant]
     Indication: BACK PAIN
     Dosage: UNK
     Dates: start: 19990101
  2. CHANTIX [Suspect]
     Dosage: 1 MG, UNK
     Route: 048
     Dates: start: 20080509, end: 20080529
  3. NEURONTIN [Concomitant]
     Indication: BACK PAIN
     Dosage: UNK
     Dates: start: 20000101
  4. SYNTHROID [Concomitant]
     Indication: HYPOTHYROIDISM
     Dosage: UNK
     Dates: start: 19990101
  5. PLAQUENIL [Concomitant]
     Indication: BACK PAIN
     Dosage: UNK
     Dates: start: 20060101
  6. CHANTIX [Suspect]
     Indication: SMOKING CESSATION THERAPY
     Dosage: 0.5 MG, UNK
     Route: 048
     Dates: start: 20050929, end: 20051001
  7. PLAQUENIL [Concomitant]
     Indication: ARTHRALGIA
  8. PLAQUENIL [Concomitant]
     Indication: SYSTEMIC LUPUS ERYTHEMATOSUS

REACTIONS (6)
  - INTENTIONAL OVERDOSE [None]
  - ANGER [None]
  - SUICIDE ATTEMPT [None]
  - NIGHTMARE [None]
  - DEPRESSION [None]
  - ANXIETY [None]
